FAERS Safety Report 7623285-7 (Version None)
Quarter: 2011Q3

REPORT INFORMATION
  Report Type: 
  Country: None (occurrence: None)
  Receive Date: 20110712
  Receipt Date: 20110628
  Transmission Date: 20111222
  Serious: Yes (Other)
  Sender: FDA-Public Use
  Company Number: 2011P1007442

PATIENT
  Age: 75 Year
  Sex: Female

DRUGS (1)
  1. ALBENZA [Suspect]
     Dosage: PO
     Route: 048

REACTIONS (2)
  - HYPERBILIRUBINAEMIA [None]
  - LIVER FUNCTION TEST ABNORMAL [None]
